FAERS Safety Report 9888860 (Version 1)
Quarter: 2014Q1

REPORT INFORMATION
  Report Type: Spontaneous
  Country: US (occurrence: None)
  Receive Date: 20140207
  Receipt Date: 20140207
  Transmission Date: 20141002
  Serious: Yes (Death, Hospitalization)
  Sender: FDA-Public Use
  Company Number: QSC-2014-0034

PATIENT
  Age: 58 Year
  Sex: Male
  Weight: 68 kg

DRUGS (19)
  1. H.P ACTHAR GEL (ADRENOCORITCOTROPIC HORMONE) GETL FOR INJECTION, 80 U/ML [Suspect]
     Indication: POLYMYOSITIS
     Dosage: 80 UNITS, BIW, SUBCUTANEOUS
     Route: 058
     Dates: start: 20130520
  2. MEDROL(METHYLPREDNISOLONE) [Concomitant]
  3. PROAIR HFA (SALBUTAMOL SULFATE) [Concomitant]
  4. PREDNISONE(PREDNISONE) [Concomitant]
  5. FUROSEMIDE(FUROSEMIDE) [Concomitant]
  6. PROTONIX(PANTOPRAZOLE SODIUM SESQUIHYRATE) [Concomitant]
  7. ZYRTEC(CETIRIZINE HYDROCHLORIDE) [Concomitant]
  8. FERROUS SULFATE(FERROUS SULFATE) [Concomitant]
  9. ACETAMINOPHEN(PARACETEMAOL) [Concomitant]
  10. CULTURELLE(LACTOBACILLUS NOS) [Concomitant]
  11. FOLIC ACID (FOLIC ACID) [Concomitant]
  12. MULTIVITMAIN (VITAMINS NOS) [Concomitant]
  13. SUPER B COMPLEX (VITAMIN B COMPLEX) [Concomitant]
  14. VITAMIN D NOSE (VITAMIN D NOS) [Concomitant]
  15. ZITHROMAX(AZITHROMYCIN) [Concomitant]
  16. ADVAIR(FLUTICASONE PROPRIONATE, SALMETEROL XINAFOATE) [Concomitant]
  17. BENADRYL(DIPHENHYDRAMINE HYDROCHLORIDE) [Concomitant]
  18. PREVAGEN [Concomitant]
  19. ELOCON CREAM (MOMETASONE FUROATE CREAM) [Concomitant]

REACTIONS (12)
  - Acute respiratory distress syndrome [None]
  - Pneumonia aspiration [None]
  - Respiratory failure [None]
  - Lactic acidosis [None]
  - Shock [None]
  - Respiratory arrest [None]
  - Atrial fibrillation [None]
  - Skin necrosis [None]
  - Extremity necrosis [None]
  - Anaemia [None]
  - Thrombocytopenia [None]
  - Bundle branch block left [None]
